FAERS Safety Report 4420931-6 (Version None)
Quarter: 2004Q3

REPORT INFORMATION
  Report Type: 
  Country: None (occurrence: None)
  Receive Date: 20040809
  Receipt Date: 20040727
  Transmission Date: 20050211
  Serious: Yes (Hospitalization)
  Sender: FDA-Public Use
  Company Number: BE-JNJFOC-20040702529

PATIENT
  Sex: Male

DRUGS (6)
  1. INFLIXIMAB [Suspect]
     Indication: DRUG USE FOR UNKNOWN INDICATION
     Route: 042
  2. LOSARTAN AND HYDROCHLOROTHIAZIDE [Concomitant]
     Route: 049
  3. LOSARTAN AND HYDROCHLOROTHIAZIDE [Concomitant]
     Route: 049
  4. ESOMEPRAZOLE [Concomitant]
     Route: 049
  5. CLOTIAZEPAM [Concomitant]
     Route: 049
  6. MELOXICAM [Concomitant]
     Route: 049

REACTIONS (6)
  - ASTHENIA [None]
  - DIABETES MELLITUS NON-INSULIN-DEPENDENT [None]
  - FATIGUE [None]
  - HYPERHIDROSIS [None]
  - VIRAL INFECTION [None]
  - WEIGHT DECREASED [None]
